FAERS Safety Report 7299368-0 (Version None)
Quarter: 2011Q1

REPORT INFORMATION
  Report Type: 
  Country: None (occurrence: None)
  Receive Date: 20110217
  Receipt Date: 20110209
  Transmission Date: 20110831
  Serious: Yes (Other)
  Sender: FDA-Public Use
  Company Number: B0547392A

PATIENT
  Sex: Female

DRUGS (4)
  1. UNKNOWN DRUG [Concomitant]
     Route: 065
     Dates: start: 20050101, end: 20060101
  2. SINEMET [Concomitant]
     Dosage: 500MG PER DAY
     Route: 065
  3. REQUIP [Suspect]
     Indication: PARKINSON'S DISEASE
     Route: 065
     Dates: start: 20010101, end: 20060101
  4. MADOPAR [Concomitant]
     Route: 065
     Dates: start: 19960101, end: 20010101

REACTIONS (4)
  - OBSESSIVE-COMPULSIVE DISORDER [None]
  - ANXIETY [None]
  - DEPRESSION [None]
  - PATHOLOGICAL GAMBLING [None]
